FAERS Safety Report 7711228-7 (Version None)
Quarter: 2011Q3

REPORT INFORMATION
  Report Type: 
  Country: None (occurrence: None)
  Receive Date: 20110826
  Receipt Date: 20110822
  Transmission Date: 20111222
  Serious: No
  Sender: FDA-Public Use
  Company Number: US-BIOGENIDEC-2011BI032337

PATIENT
  Age: 26 Year
  Sex: Female

DRUGS (2)
  1. AVONEX [Concomitant]
     Indication: MULTIPLE SCLEROSIS
     Route: 030
  2. TYSABRI [Suspect]
     Indication: MULTIPLE SCLEROSIS
     Route: 042
     Dates: start: 20110125

REACTIONS (6)
  - MUSCULAR WEAKNESS [None]
  - DECREASED INTEREST [None]
  - PERSONALITY DISORDER [None]
  - CONFUSIONAL STATE [None]
  - FALL [None]
  - MEMORY IMPAIRMENT [None]
